FAERS Safety Report 24129257 (Version 1)
Quarter: 2024Q3

REPORT INFORMATION
  Report Type: Other
  Country: US (occurrence: US)
  Receive Date: 20240723
  Receipt Date: 20240723
  Transmission Date: 20241017
  Serious: Yes (Other)
  Sender: UROVANT SCIENCES
  Company Number: US-UROVANT SCIENCES GMBH-202407-URV-001086

PATIENT
  Sex: Female

DRUGS (1)
  1. GEMTESA [Suspect]
     Active Substance: VIBEGRON
     Indication: Urinary retention
     Dosage: UNK UNK, QD
     Route: 065
     Dates: end: 20240708

REACTIONS (3)
  - Pulmonary oedema [Unknown]
  - Cardiac disorder [Unknown]
  - Product use in unapproved indication [Unknown]
